FAERS Safety Report 7277987-5 (Version None)
Quarter: 2011Q1

REPORT INFORMATION
  Report Type: 
  Country: None (occurrence: None)
  Receive Date: 20110207
  Receipt Date: 20110131
  Transmission Date: 20110831
  Serious: Yes (Other)
  Sender: FDA-Public Use
  Company Number: JP-SANOFI-AVENTIS-2011SA005864

PATIENT
  Age: 80 Year
  Sex: Male
  Weight: 66 kg

DRUGS (4)
  1. DEXAMETHASONE [Suspect]
     Dates: start: 20090601
  2. DOCETAXEL [Suspect]
     Route: 065
     Dates: start: 20070701
  3. DEXAMETHASONE [Suspect]
     Route: 065
     Dates: start: 20070701, end: 20080101
  4. ESTRAMUSTINE [Suspect]
     Dates: start: 20070701

REACTIONS (9)
  - HYPOPHAGIA [None]
  - ANAEMIA [None]
  - WEIGHT DECREASED [None]
  - FLUSHING [None]
  - NICOTINIC ACID DEFICIENCY [None]
  - SKIN EROSION [None]
  - OCULAR HYPERAEMIA [None]
  - ONYCHOCLASIS [None]
  - OEDEMA PERIPHERAL [None]
